FAERS Safety Report 5949753-1 (Version None)
Quarter: 2008Q4

REPORT INFORMATION
  Report Type: 
  Country: None (occurrence: None)
  Receive Date: 20081112
  Receipt Date: 20081103
  Transmission Date: 20090506
  Serious: Yes (Other)
  Sender: FDA-Public Use
  Company Number: MT-ABBOTT-08P-103-0483880-00

PATIENT
  Age: 45 Year
  Sex: Male
  Weight: 80 kg

DRUGS (3)
  1. HUMIRA [Suspect]
     Indication: SERONEGATIVE ARTHRITIS
     Route: 058
     Dates: start: 20080501, end: 20080901
  2. NSAIDS [Concomitant]
     Indication: DRUG USE FOR UNKNOWN INDICATION
     Route: 065
  3. ETANERCEPT [Concomitant]
     Indication: ALPHA TUMOUR NECROSIS FACTOR

REACTIONS (2)
  - ARTHRITIS [None]
  - TREATMENT FAILURE [None]
